FAERS Safety Report 4851800-5 (Version None)
Quarter: 2005Q4

REPORT INFORMATION
  Report Type: 
  Country: None (occurrence: None)
  Receive Date: 20051213
  Receipt Date: 20051201
  Transmission Date: 20060501
  Serious: Yes (Hospitalization)
  Sender: FDA-Public Use
  Company Number: US-JNJFOC-20051200974

PATIENT
  Sex: Female
  Weight: 63.5 kg

DRUGS (10)
  1. INFLIXIMAB [Suspect]
     Indication: RHEUMATOID ARTHRITIS
     Route: 042
  2. CALCIUM GLUCONATE [Concomitant]
  3. FOLIC ACID [Concomitant]
  4. FOSAMAX [Concomitant]
  5. METHOTREXATE [Concomitant]
  6. POTASSIUM [Concomitant]
  7. PREDNISONE [Concomitant]
  8. PREMARIN [Concomitant]
  9. HYDROCHLOROTHIAZIDE [Concomitant]
  10. PROTONIX [Concomitant]

REACTIONS (1)
  - CHOLECYSTECTOMY [None]
